FAERS Safety Report 7132472-6 (Version None)
Quarter: 2010Q4

REPORT INFORMATION
  Report Type: 
  Country: None (occurrence: None)
  Receive Date: 20101202
  Receipt Date: 20101123
  Transmission Date: 20110411
  Serious: Yes (Hospitalization)
  Sender: FDA-Public Use
  Company Number: GXBR2010US02000

PATIENT
  Sex: Female
  Weight: 74.83 kg

DRUGS (10)
  1. METHOTREXATE SODIUM [Suspect]
     Indication: AUTOIMMUNE DISORDER
     Dosage: 25 MG, QW
     Route: 058
     Dates: start: 20090501, end: 20100801
  2. CITALOPRAM [Concomitant]
     Dosage: 20 MG, QD
  3. POTASSIUM CHLORIDE [Concomitant]
     Indication: SUPPLEMENTATION THERAPY
     Dosage: 20 MG, BID
  4. ASPIRIN [Concomitant]
     Indication: ROUTINE HEALTH MAINTENANCE
     Dosage: 325 MG, QD
  5. PREDNISONE [Concomitant]
     Indication: AUTOIMMUNE DISORDER
     Dosage: 15 MG, QD
  6. FOSAMAX [Concomitant]
     Indication: BONE DISORDER
     Dosage: ONCE WEEKLY
  7. VITAMIN D3 [Concomitant]
     Indication: SUPPLEMENTATION THERAPY
     Dosage: 10000 U, QW
  8. GABAPENTIN [Concomitant]
     Dosage: 300 MG, QD
  9. PREVACID [Concomitant]
     Dosage: UNK
  10. LISINOPRIL [Concomitant]
     Indication: BLOOD PRESSURE
     Dosage: 7.5 MG, QD

REACTIONS (9)
  - ANAEMIA [None]
  - FALL [None]
  - FATIGUE [None]
  - INJECTION SITE HAEMATOMA [None]
  - LEUKOCYTOSIS [None]
  - MUSCLE FATIGUE [None]
  - MUSCULAR WEAKNESS [None]
  - PAIN IN EXTREMITY [None]
  - PYREXIA [None]
